FAERS Safety Report 19062086 (Version 1)
Quarter: 2021Q1

REPORT INFORMATION
  Report Type: Spontaneous
  Country: US (occurrence: US)
  Receive Date: 20210325
  Receipt Date: 20210325
  Transmission Date: 20210420
  Serious: No
  Sender: FDA-Public Use
  Company Number: None

PATIENT
  Age: 60 Year
  Weight: 71.55 kg

DRUGS (13)
  1. LETROZOLE. [Concomitant]
     Active Substance: LETROZOLE
  2. LORAZEPAM. [Concomitant]
     Active Substance: LORAZEPAM
  3. SIMVASTATIN. [Concomitant]
     Active Substance: SIMVASTATIN
  4. LEVOTHYROXINE. [Concomitant]
     Active Substance: LEVOTHYROXINE
  5. OMEPRAZOLE. [Concomitant]
     Active Substance: OMEPRAZOLE
  6. TUMERSAID [Concomitant]
  7. VITAMIN D3 [Concomitant]
     Active Substance: CHOLECALCIFEROL
  8. EVEROLIMUS. [Suspect]
     Active Substance: EVEROLIMUS
     Indication: BREAST CANCER FEMALE
     Route: 048
     Dates: start: 20200828, end: 20210325
  9. GABAPENTIN. [Concomitant]
     Active Substance: GABAPENTIN
  10. XGEVA [Concomitant]
     Active Substance: DENOSUMAB
  11. FASLODEX [Concomitant]
     Active Substance: FULVESTRANT
  12. EXEMESTANE. [Concomitant]
     Active Substance: EXEMESTANE
  13. ONDANSETRON [Concomitant]
     Active Substance: ONDANSETRON

REACTIONS (1)
  - Metastases to liver [None]

NARRATIVE: CASE EVENT DATE: 20210325
